FAERS Safety Report 8244995-7 (Version None)
Quarter: 2012Q1

REPORT INFORMATION
  Report Type: 
  Country: None (occurrence: None)
  Receive Date: 20120329
  Receipt Date: 20120321
  Transmission Date: 20120608
  Serious: Yes (Hospitalization, Other)
  Sender: FDA-Public Use
  Company Number: MY-ABBOTT-12P-101-0917576-00

PATIENT
  Sex: Female
  Weight: 85 kg

DRUGS (2)
  1. HUMIRA [Suspect]
     Indication: PRODUCT USED FOR UNKNOWN INDICATION
     Route: 050
  2. METHOTREXATE [Concomitant]
     Indication: RHEUMATOID ARTHRITIS
     Route: 048

REACTIONS (8)
  - TUBERCULOSIS [None]
  - WEIGHT DECREASED [None]
  - DYSPNOEA [None]
  - PYREXIA [None]
  - PNEUMONIA [None]
  - DECREASED APPETITE [None]
  - PLEURAL EFFUSION [None]
  - PRODUCTIVE COUGH [None]
